FAERS Safety Report 23472917 (Version 1)
Quarter: 2024Q1

REPORT INFORMATION
  Report Type: Spontaneous
  Country: US (occurrence: US)
  Receive Date: 20240203
  Receipt Date: 20240203
  Transmission Date: 20240410
  Serious: No
  Sender: FDA-Public Use
  Company Number: US-ABBVIE-5610398

PATIENT

DRUGS (2)
  1. RINVOQ [Suspect]
     Active Substance: UPADACITINIB
     Indication: Product used for unknown indication
     Route: 048
  2. CIBINQO [Suspect]
     Active Substance: ABROCITINIB
     Indication: Product used for unknown indication
     Route: 065

REACTIONS (7)
  - Eczema [Unknown]
  - Acne [Unknown]
  - Rash [Unknown]
  - Erythema [Unknown]
  - Impaired quality of life [Unknown]
  - Skin exfoliation [Unknown]
  - Skin abrasion [Unknown]
